FAERS Safety Report 18599180 (Version 23)
Quarter: 2021Q4

REPORT INFORMATION
  Report Type: Report from Study
  Country: US (occurrence: US)
  Receive Date: 20201210
  Receipt Date: 20211227
  Transmission Date: 20220303
  Serious: Yes (Hospitalization, Other)
  Sender: FDA-Public Use
  Company Number: US-NOVARTISPH-NVSC2020US328425

PATIENT
  Age: 55 Year
  Sex: Female
  Weight: 63.492 kg

DRUGS (11)
  1. TREPROSTINIL [Suspect]
     Active Substance: TREPROSTINIL
     Indication: Pulmonary arterial hypertension
     Dosage: 6.25 NG/KG/MIN
     Route: 042
     Dates: start: 20201203
  2. TREPROSTINIL [Suspect]
     Active Substance: TREPROSTINIL
     Dosage: 36.5 NG/KG/MIN, STRENGTH: 2.5 MG/ML
     Route: 042
  3. TREPROSTINIL [Suspect]
     Active Substance: TREPROSTINIL
     Dosage: 7.5 NG/KG/MIN
     Route: 042
  4. TREPROSTINIL [Suspect]
     Active Substance: TREPROSTINIL
     Dosage: 8.75 NG/KG/MIN
     Route: 042
  5. TREPROSTINIL [Suspect]
     Active Substance: TREPROSTINIL
     Dosage: 16.5 NG/KG/MIN
     Route: 042
  6. TREPROSTINIL [Suspect]
     Active Substance: TREPROSTINIL
     Dosage: 24.5 NG/KG/MIN
     Route: 042
  7. TREPROSTINIL [Suspect]
     Active Substance: TREPROSTINIL
     Dosage: 30.5 NG/KG/MIN, CONT
     Route: 042
  8. TREPROSTINIL [Suspect]
     Active Substance: TREPROSTINIL
     Dosage: UNK, CONT
     Route: 065
  9. TREPROSTINIL [Suspect]
     Active Substance: TREPROSTINIL
     Dosage: UNK
     Route: 065
  10. REMODULIN [Suspect]
     Active Substance: TREPROSTINIL
     Indication: Product used for unknown indication
     Dosage: UNK
     Route: 065
  11. TADALAFIL [Concomitant]
     Active Substance: TADALAFIL
     Indication: Product used for unknown indication
     Dosage: UNK
     Route: 065

REACTIONS (32)
  - Vascular device infection [Unknown]
  - Pyrexia [Unknown]
  - Burning sensation [Unknown]
  - Back pain [Unknown]
  - Neck pain [Unknown]
  - Abdominal distension [Unknown]
  - Pain [Unknown]
  - Chest pain [Unknown]
  - Urinary tract infection [Unknown]
  - COVID-19 [Unknown]
  - Haematuria [Unknown]
  - Pain in extremity [Unknown]
  - Muscle spasms [Unknown]
  - Pelvic pain [Unknown]
  - Abdominal pain lower [Unknown]
  - Oropharyngeal pain [Unknown]
  - Illness [Unknown]
  - Mouth swelling [Unknown]
  - Swelling of eyelid [Unknown]
  - Myalgia [Unknown]
  - Arthralgia [Unknown]
  - Dyspnoea [Unknown]
  - Headache [Unknown]
  - Abdominal pain [Recovering/Resolving]
  - Pain in jaw [Unknown]
  - Musculoskeletal pain [Unknown]
  - Nausea [Unknown]
  - Fluid retention [Unknown]
  - Asthenia [Unknown]
  - Diarrhoea [Unknown]
  - Fatigue [Unknown]
  - Incorrect dose administered [Unknown]

NARRATIVE: CASE EVENT DATE: 20201218
